FAERS Safety Report 5872849-X (Version None)
Quarter: 2008Q3

REPORT INFORMATION
  Report Type: 
  Country: None (occurrence: None)
  Receive Date: 20080905
  Receipt Date: 20080825
  Transmission Date: 20090109
  Serious: Yes (Hospitalization)
  Sender: FDA-Public Use
  Company Number: JP-PFIZER INC-2008064274

PATIENT
  Sex: Male

DRUGS (11)
  1. GABAPEN [Suspect]
     Indication: CANCER PAIN
     Route: 048
  2. CODEINE PHOSPHATE [Concomitant]
     Indication: CANCER PAIN
     Route: 048
     Dates: start: 20071003, end: 20071019
  3. RISEDRONATE SODIUM [Concomitant]
     Route: 048
  4. TOLEDOMIN [Concomitant]
     Route: 048
  5. HYPEN [Concomitant]
     Route: 048
  6. DIAZEPAM [Concomitant]
     Route: 048
  7. TOFRANIL [Concomitant]
     Route: 048
  8. FAMOTIDINE [Concomitant]
     Route: 048
  9. PREDONINE [Concomitant]
     Route: 048
  10. COTRIM [Concomitant]
     Route: 048
  11. ITRIZOLE [Concomitant]
     Route: 048

REACTIONS (3)
  - DIZZINESS [None]
  - DYSPNOEA [None]
  - DYSSTASIA [None]
